FAERS Safety Report 9715692 (Version 2)
Quarter: 2013Q4

REPORT INFORMATION
  Report Type: Report from Study
  Country: GB (occurrence: GB)
  Receive Date: 20131127
  Receipt Date: 20131230
  Transmission Date: 20140711
  Serious: Yes (Hospitalization)
  Sender: FDA-Public Use
  Company Number: GB-ROCHE-1309987

PATIENT
  Sex: Female

DRUGS (5)
  1. XOLAIR [Suspect]
     Indication: ASTHMA
     Route: 065
     Dates: start: 2009, end: 2013
  2. XOLAIR [Suspect]
     Dosage: HIGHER DOSE
     Route: 065
     Dates: start: 2013
  3. VENTOLIN [Concomitant]
  4. SYMBICORT [Concomitant]
  5. MONTELUKAST [Concomitant]

REACTIONS (6)
  - Dyspnoea [Recovering/Resolving]
  - Asthma [Not Recovered/Not Resolved]
  - Wheezing [Recovering/Resolving]
  - Shock [Recovering/Resolving]
  - Cough [Recovering/Resolving]
  - Drug ineffective [Unknown]
